FAERS Safety Report 18012734 (Version 1)
Quarter: 2020Q3

REPORT INFORMATION
  Report Type: Spontaneous
  Country: US (occurrence: US)
  Receive Date: 20200713
  Receipt Date: 20200713
  Transmission Date: 20201103
  Serious: No
  Sender: FDA-Public Use
  Company Number: US-SHIRE-US202022382

PATIENT
  Sex: Male

DRUGS (1)
  1. GATTEX [Suspect]
     Active Substance: TEDUGLUTIDE\WATER
     Indication: PRODUCT USED FOR UNKNOWN INDICATION
     Dosage: 0.419 UNK, 1X/DAY:QD
     Route: 058
     Dates: start: 20200608

REACTIONS (2)
  - Injection site pruritus [Recovering/Resolving]
  - Weight increased [Not Recovered/Not Resolved]
